FAERS Safety Report 12837626 (Version 4)
Quarter: 2016Q4

REPORT INFORMATION
  Report Type: Report from Study
  Country: JP (occurrence: JP)
  Receive Date: 20161012
  Receipt Date: 20161109
  Transmission Date: 20170207
  Serious: Yes (Death, Life-Threatening, Hospitalization, Other)
  Sender: FDA-Public Use
  Company Number: JP-VIFOR (INTERNATIONAL) INC.-VIT-2016-06228

PATIENT
  Age: 80 Year
  Sex: Male

DRUGS (25)
  1. NESP [Concomitant]
     Active Substance: DARBEPOETIN ALFA
     Route: 042
     Dates: start: 20160421, end: 20160519
  2. ROCALTROL [Concomitant]
     Active Substance: CALCITRIOL
     Route: 042
     Dates: end: 20160828
  3. INTRALIPOS [Concomitant]
     Active Substance: SOYBEAN OIL
     Indication: EATING DISORDER
     Route: 041
     Dates: start: 20160823, end: 20160828
  4. CALTAN OD [Concomitant]
     Indication: HYPERPHOSPHATAEMIA
     Route: 048
     Dates: end: 20160823
  5. LAXOBERON [Concomitant]
     Active Substance: SODIUM PICOSULFATE
     Route: 048
     Dates: end: 20160823
  6. NESP [Concomitant]
     Active Substance: DARBEPOETIN ALFA
     Route: 042
     Dates: start: 20160805, end: 20160828
  7. RISUMIC [Concomitant]
     Active Substance: AMEZINIUM METILSULFATE
     Route: 048
     Dates: end: 20160828
  8. GASMOTIN [Concomitant]
     Active Substance: MOSAPRIDE CITRATE
     Route: 048
     Dates: end: 20160823
  9. VELPHORO [Suspect]
     Active Substance: FERRIC OXYHYDROXIDE
     Indication: DIALYSIS
  10. NESP [Concomitant]
     Active Substance: DARBEPOETIN ALFA
     Route: 042
     Dates: start: 20160609, end: 20160804
  11. KIDMIN [Concomitant]
     Active Substance: AMINO ACIDS\ELECTROLYTES NOS
     Indication: EATING DISORDER
     Route: 041
     Dates: start: 20160824, end: 20160828
  12. BIOFERMIN R [Concomitant]
     Active Substance: BACILLUS SUBTILIS\LACTOBACILLUS ACIDOPHILUS\STREPTOCOCCUS FAECAIS
     Route: 048
     Dates: end: 20160823
  13. NESP [Concomitant]
     Active Substance: DARBEPOETIN ALFA
     Route: 042
     Dates: end: 20160420
  14. NESP [Concomitant]
     Active Substance: DARBEPOETIN ALFA
     Route: 042
     Dates: start: 20160520, end: 20160608
  15. SENNOSIDE A+B [Concomitant]
     Active Substance: SENNOSIDES A AND B
     Route: 048
     Dates: end: 20160823
  16. TEGRETOL [Concomitant]
     Active Substance: CARBAMAZEPINE
     Route: 048
     Dates: end: 20160828
  17. L-CARTIN FF [Concomitant]
     Active Substance: LEVOCARNITINE
     Route: 042
     Dates: start: 20160729, end: 20160828
  18. ANPLAG [Concomitant]
     Active Substance: SARPOGRELATE
     Route: 048
     Dates: start: 20160708, end: 20160823
  19. VELPHORO [Suspect]
     Active Substance: FERRIC OXYHYDROXIDE
     Indication: CHRONIC KIDNEY DISEASE
  20. DOPS OD [Concomitant]
     Active Substance: DROXIDOPA
     Indication: PROCEDURAL HYPOTENSION
     Route: 048
     Dates: start: 20160805, end: 20160823
  21. SORBITOL. [Concomitant]
     Active Substance: SORBITOL
     Route: 048
     Dates: end: 20160823
  22. VELPHORO [Suspect]
     Active Substance: FERRIC OXYHYDROXIDE
     Indication: HYPERPHOSPHATAEMIA
     Route: 048
     Dates: start: 20160407, end: 20160823
  23. GASTER [Concomitant]
     Active Substance: FAMOTIDINE
     Route: 048
     Dates: end: 20160823
  24. RIVOTRIL [Concomitant]
     Active Substance: CLONAZEPAM
     Route: 048
     Dates: end: 20160828
  25. EPADEL S [Concomitant]
     Active Substance: ICOSAPENT ETHYL
     Route: 048
     Dates: end: 20160823

REACTIONS (10)
  - Condition aggravated [Unknown]
  - Melaena [Unknown]
  - Incisional hernia [Unknown]
  - Vomiting [Unknown]
  - Haematochezia [Unknown]
  - Pain [Unknown]
  - Blood pressure abnormal [Unknown]
  - Condition aggravated [Fatal]
  - Intestinal ischaemia [Fatal]
  - Ileus [Unknown]

NARRATIVE: CASE EVENT DATE: 2016
